FAERS Safety Report 18958335 (Version 1)
Quarter: 2021Q1

REPORT INFORMATION
  Report Type: Other
  Country: US (occurrence: US)
  Receive Date: 20210302
  Receipt Date: 20210302
  Transmission Date: 20210420
  Serious: Yes (Other)
  Sender: FDA-Public Use
  Company Number: US-XGEN PHARMACEUTICALS DJB, INC.-2107472

PATIENT
  Age: 4 Year
  Sex: Female

DRUGS (1)
  1. DACTINOMYCIN [Suspect]
     Active Substance: DACTINOMYCIN

REACTIONS (1)
  - Venoocclusive liver disease [Unknown]
